FAERS Safety Report 9263251 (Version 1)
Quarter: 2013Q2

REPORT INFORMATION
  Report Type: Spontaneous
  Country: US (occurrence: None)
  Receive Date: 20130429
  Receipt Date: 20130429
  Transmission Date: 20140414
  Serious: Yes (Death)
  Sender: FDA-Public Use
  Company Number: None

PATIENT
  Age: 93 Year
  Sex: Female
  Weight: 59.88 kg

DRUGS (1)
  1. AZITHROMYCIN [Suspect]
     Indication: COUGH

REACTIONS (2)
  - Syncope [None]
  - Arrhythmia [None]
